FAERS Safety Report 13516642 (Version 1)
Quarter: 2017Q2

REPORT INFORMATION
  Report Type: Spontaneous
  Country: US (occurrence: US)
  Receive Date: 20170504
  Receipt Date: 20170504
  Transmission Date: 20170830
  Serious: Yes (Other)
  Sender: FDA-Public Use
  Company Number: None

PATIENT
  Age: 66 Year
  Sex: Female
  Weight: 85.05 kg

DRUGS (5)
  1. LEVOTHYROXINE. [Concomitant]
     Active Substance: LEVOTHYROXINE
  2. PRAVISTATIN [Concomitant]
     Active Substance: PRAVASTATIN
  3. FISH OIL [Concomitant]
     Active Substance: FISH OIL
  4. COQ10 [Concomitant]
     Active Substance: UBIDECARENONE
  5. BRILINTA [Suspect]
     Active Substance: TICAGRELOR
     Indication: ANTICOAGULANT THERAPY
     Dosage: ?          QUANTITY:1 TABLET(S); TWICE A DAY ORAL?
     Route: 048
     Dates: start: 20170224, end: 20170502

REACTIONS (1)
  - Dyspnoea [None]

NARRATIVE: CASE EVENT DATE: 20170226
